FAERS Safety Report 19523263 (Version 1)
Quarter: 2021Q3

REPORT INFORMATION
  Report Type: Spontaneous
  Country: MY (occurrence: MY)
  Receive Date: 20210712
  Receipt Date: 20210712
  Transmission Date: 20211014
  Serious: Yes (Other)
  Sender: FDA-Public Use
  Company Number: MY-PFIZER INC-2021808554

PATIENT
  Age: 40 Year
  Sex: Female

DRUGS (1)
  1. DILANTIN [Suspect]
     Active Substance: PHENYTOIN
     Indication: EPILEPSY
     Dosage: 300 MG, DAILY (PER 1 DAY)
     Route: 048

REACTIONS (5)
  - Flushing [Recovering/Resolving]
  - Mouth ulceration [Recovering/Resolving]
  - Feeling hot [Recovering/Resolving]
  - Conjunctivitis [Recovering/Resolving]
  - Rash pruritic [Recovering/Resolving]
